FAERS Safety Report 16228207 (Version 2)
Quarter: 2019Q2

REPORT INFORMATION
  Report Type: Spontaneous
  Country: US (occurrence: US)
  Receive Date: 20190423
  Receipt Date: 20190429
  Transmission Date: 20190711
  Serious: No
  Sender: FDA-Public Use
  Company Number: US-PFIZER INC-2019172104

PATIENT
  Age: 6 Month
  Sex: Male

DRUGS (20)
  1. ADENOSINE PHOSPHATE [Suspect]
     Active Substance: ADENOSINE PHOSPHATE
     Indication: TACHYCARDIA
     Dosage: 0.1 MG/KG (SINGLE DOSE)
  2. FLECAINIDE [Concomitant]
     Active Substance: FLECAINIDE
     Indication: VENTRICULAR TACHYCARDIA
     Dosage: 5 MG/KG, QD
     Route: 048
  3. ROCURONIUM [Concomitant]
     Active Substance: ROCURONIUM BROMIDE
     Dosage: 7 MG, UNK
  4. ADENOSINE PHOSPHATE [Suspect]
     Active Substance: ADENOSINE PHOSPHATE
     Dosage: 0.2 MG/KG (2 DOSES)
  5. ADENOSINE PHOSPHATE [Suspect]
     Active Substance: ADENOSINE PHOSPHATE
     Dosage: 0.2 MG/KG
  6. MEXILETINE [Concomitant]
     Active Substance: MEXILETINE
     Indication: VENTRICULAR TACHYCARDIA
     Dosage: 15 MG/KG, QD
  7. LIDOCAINE. [Concomitant]
     Active Substance: LIDOCAINE
     Indication: VENTRICULAR TACHYCARDIA
     Dosage: UNK (20 MCG/KG/MIN, INFUSION)
  8. ESMOLOL [Concomitant]
     Active Substance: ESMOLOL HYDROCHLORIDE
     Indication: VENTRICULAR TACHYCARDIA
     Dosage: UNK (50 MCG/KG/MIN,INFUSION)
  9. NITROPRUSSIDE [Concomitant]
     Active Substance: NITROPRUSSIDE
     Indication: MEAN ARTERIAL PRESSURE INCREASED
     Dosage: UNK (0.3 MCG/KG/MIN) DRIP
     Route: 041
  10. ADENOSINE PHOSPHATE [Suspect]
     Active Substance: ADENOSINE PHOSPHATE
     Dosage: 0.2 MG/KG
  11. AMIODARONE HCL [Suspect]
     Active Substance: AMIODARONE HYDROCHLORIDE
     Dosage: 5 MG/KG, QD (MAINTENANCEDOSE WAS DECREASED)
     Route: 048
  12. AMIODARONE [Concomitant]
     Active Substance: AMIODARONE
     Indication: VENTRICULAR TACHYCARDIA
     Dosage: 5 MG/KG, (BOLUS)
     Route: 040
  13. CALCIUM CHLORIDE. [Concomitant]
     Active Substance: CALCIUM CHLORIDE
     Indication: BLOOD PRESSURE SYSTOLIC DECREASED
     Dosage: 100 MG, UNK (PRIOR TO AMIODARONE BOLUS (5MG/KG)
  14. MILRINONE [Concomitant]
     Active Substance: MILRINONE
     Indication: BLOOD PRESSURE SYSTOLIC DECREASED
     Dosage: UNK (0.5 MCG/KG/MIN)
  15. KETAMINE [Concomitant]
     Active Substance: KETAMINE
     Dosage: 7 MG, UNK
  16. CALCIUM CHLORIDE. [Concomitant]
     Active Substance: CALCIUM CHLORIDE
     Dosage: UNK (5 MG/KG/HR)
  17. MORPHINE [Concomitant]
     Active Substance: MORPHINE
     Dosage: UNK (INFUSIONS)
  18. AMIODARONE HCL [Suspect]
     Active Substance: AMIODARONE HYDROCHLORIDE
     Indication: VENTRICULAR TACHYCARDIA
     Dosage: 20 MG/KG, QD
     Route: 048
  19. ESMOLOL [Concomitant]
     Active Substance: ESMOLOL HYDROCHLORIDE
     Dosage: UNK (150 MCG/KG/MIN, DRIP)
     Route: 041
  20. DEXMEDETOMIDINE. [Concomitant]
     Active Substance: DEXMEDETOMIDINE
     Dosage: UNK (INFUSIONS)

REACTIONS (2)
  - Product use issue [Unknown]
  - Product use in unapproved indication [Unknown]
